FAERS Safety Report 7636420-1 (Version None)
Quarter: 2011Q3

REPORT INFORMATION
  Report Type: 
  Country: None (occurrence: None)
  Receive Date: 20110726
  Receipt Date: 20110715
  Transmission Date: 20111222
  Serious: Yes (Hospitalization)
  Sender: FDA-Public Use
  Company Number: US-JNJFOC-20110604202

PATIENT
  Sex: Male
  Weight: 60.5 kg

DRUGS (8)
  1. INFLIXIMAB, RECOMBINANT [Suspect]
     Route: 042
     Dates: start: 20100917
  2. VITAMIN D [Concomitant]
  3. MESALAMINE [Concomitant]
     Route: 048
  4. INFLIXIMAB, RECOMBINANT [Suspect]
     Indication: CROHN'S DISEASE
     Route: 042
     Dates: start: 20110103
  5. INFLIXIMAB, RECOMBINANT [Suspect]
     Route: 042
     Dates: start: 20110425
  6. MULTIPLE VITAMINS [Concomitant]
  7. HYDROCORTISONE [Concomitant]
  8. PREDNISONE [Concomitant]

REACTIONS (1)
  - CROHN'S DISEASE [None]
